FAERS Safety Report 4603634-4 (Version None)
Quarter: 2005Q1

REPORT INFORMATION
  Report Type: 
  Country: None (occurrence: None)
  Receive Date: 20050308
  Receipt Date: 20050222
  Transmission Date: 20050727
  Serious: Yes (Life-Threatening, Other)
  Sender: FDA-Public Use
  Company Number: CN-2005-002755

PATIENT
  Age: 47 Year
  Sex: Male
  Weight: 67 kg

DRUGS (1)
  1. ULTRAVIST 300 [Suspect]
     Indication: COMPUTERISED TOMOGRAM
     Dosage: 90 ML, 1 DOSE, INTRAVENOUS
     Route: 042
     Dates: start: 20050201, end: 20050201

REACTIONS (7)
  - ANAPHYLACTIC SHOCK [None]
  - CARDIAC ARREST [None]
  - HYPOTENSION [None]
  - LARYNGEAL OEDEMA [None]
  - LOSS OF CONSCIOUSNESS [None]
  - PRURITUS [None]
  - PULSE ABNORMAL [None]
